FAERS Safety Report 10142607 (Version 1)
Quarter: 2014Q2

REPORT INFORMATION
  Report Type: Spontaneous
  Country: US (occurrence: None)
  Receive Date: 20140428
  Receipt Date: 20140428
  Transmission Date: 20141212
  Serious: Yes (Hospitalization)
  Sender: FDA-Public Use
  Company Number: None

PATIENT
  Age: 61 Year
  Sex: Male
  Weight: 100 kg

DRUGS (1)
  1. CETUXIMAB [Suspect]

REACTIONS (3)
  - Pyrexia [None]
  - Staphylococcal bacteraemia [None]
  - Blood culture positive [None]
